FAERS Safety Report 11809362 (Version 4)
Quarter: 2017Q1

REPORT INFORMATION
  Report Type: Report from Study
  Country: AU (occurrence: AU)
  Receive Date: 20151207
  Receipt Date: 20170112
  Transmission Date: 20170428
  Serious: Yes (Hospitalization)
  Sender: FDA-Public Use
  Company Number: AU-AMGEN-AUSCT2015081414

PATIENT
  Age: 59 Year
  Sex: Female
  Weight: 59.9 kg

DRUGS (16)
  1. CLEXANE [Concomitant]
     Active Substance: ENOXAPARIN SODIUM
     Dosage: 90 MG, UNK
     Route: 058
     Dates: start: 20150721, end: 20160527
  2. TRAMETINIB [Concomitant]
     Active Substance: TRAMETINIB
     Dosage: UNK
     Dates: start: 20150722, end: 201512
  3. TALIMOGENE LAHERPAREPVEC [Suspect]
     Active Substance: TALIMOGENE LAHERPAREPVEC
     Indication: MALIGNANT MELANOMA
     Dosage: 4 ML, UNK
     Route: 026
     Dates: start: 20150212, end: 20150707
  4. MOVICOL [Concomitant]
     Active Substance: POLYETHYLENE GLYCOL 3350\POTASSIUM CHLORIDE\SODIUM BICARBONATE\SODIUM CHLORIDE
     Dosage: 1 UNK, UNK
     Route: 048
     Dates: start: 20150630, end: 20160527
  5. ENDONE [Concomitant]
     Active Substance: OXYCODONE HYDROCHLORIDE
     Dosage: 5 MG, UNK
     Route: 048
     Dates: start: 20150212, end: 20160527
  6. MK-3475 [Suspect]
     Active Substance: PEMBROLIZUMAB
     Indication: MALIGNANT MELANOMA
     Dosage: 200 MG, UNK
     Route: 042
     Dates: start: 20150318, end: 20150707
  7. EMLA [Concomitant]
     Active Substance: LIDOCAINE\PRILOCAINE
     Dosage: 5 UNK, UNK
     Route: 061
     Dates: start: 20150303, end: 20150707
  8. DABRAFENIB [Concomitant]
     Active Substance: DABRAFENIB
     Dosage: UNK
     Dates: start: 20150722
  9. ASPIRIN. [Concomitant]
     Active Substance: ASPIRIN
     Dosage: 2 UNK, UNK
     Route: 048
     Dates: start: 201505, end: 20160527
  10. VITAMIN C [Concomitant]
     Active Substance: ASCORBIC ACID
     Dosage: 1 UNK, UNK
     Route: 048
     Dates: start: 2013, end: 20160527
  11. OXYCODONE [Concomitant]
     Active Substance: OXYCODONE
     Dosage: 10 MG, UNK
     Route: 048
     Dates: start: 20150630, end: 201509
  12. NUROFEN [Concomitant]
     Active Substance: IBUPROFEN
     Dosage: 1 UNK, UNK
     Route: 048
     Dates: start: 20150611, end: 20160527
  13. LIDOCAINE. [Concomitant]
     Active Substance: LIDOCAINE
     Dosage: 1 UNK, UNK
     Route: 058
     Dates: start: 20150212, end: 20150317
  14. PARACETAMOL [Concomitant]
     Active Substance: ACETAMINOPHEN
     Dosage: 1 G, UNK
     Route: 048
     Dates: start: 20150624, end: 20150807
  15. COLOXYL WITH SENNA [Concomitant]
     Active Substance: DOCUSATE\SENNOSIDES
     Dosage: 2 UNK, UNK
     Route: 048
     Dates: start: 20150630, end: 20160527
  16. APO-SOTALOL [Concomitant]
     Active Substance: SOTALOL HYDROCHLORIDE
     Dosage: 40 MG, UNK
     Route: 048
     Dates: start: 201505, end: 20160527

REACTIONS (2)
  - Pyrexia [Recovered/Resolved]
  - Meningitis aseptic [Recovered/Resolved]

NARRATIVE: CASE EVENT DATE: 20150806
